FAERS Safety Report 15939941 (Version 2)
Quarter: 2019Q1

REPORT INFORMATION
  Report Type: Spontaneous
  Country: US (occurrence: US)
  Receive Date: 20190208
  Receipt Date: 20190213
  Transmission Date: 20190417
  Serious: No
  Sender: FDA-Public Use
  Company Number: US-JNJFOC-20190108763

PATIENT
  Age: 11 Year
  Sex: Female
  Weight: 43 kg

DRUGS (2)
  1. SPORANOX [Suspect]
     Active Substance: ITRACONAZOLE
     Indication: BLASTOMYCOSIS
     Route: 048
     Dates: start: 20180102
  2. SPORANOX [Suspect]
     Active Substance: ITRACONAZOLE
     Indication: OSTEOMYELITIS
     Route: 048
     Dates: start: 20180102

REACTIONS (2)
  - Product use complaint [Unknown]
  - Dysgeusia [Unknown]

NARRATIVE: CASE EVENT DATE: 201801
